APPROVED DRUG PRODUCT: ISOSORBIDE MONONITRATE
Active Ingredient: ISOSORBIDE MONONITRATE
Strength: 120MG
Dosage Form/Route: TABLET, EXTENDED RELEASE;ORAL
Application: A210822 | Product #001 | TE Code: AB
Applicant: DEXCEL LTD
Approved: Aug 29, 2018 | RLD: No | RS: No | Type: RX